FAERS Safety Report 8922756 (Version 2)
Quarter: 2013Q2

REPORT INFORMATION
  Report Type: Report from Study
  Country: CA (occurrence: CA)
  Receive Date: 20121123
  Receipt Date: 20130405
  Transmission Date: 20140414
  Serious: Yes (Disabling)
  Sender: FDA-Public Use
  Company Number: CA-UCBSA-071005

PATIENT
  Age: 61 Year
  Sex: Female
  Weight: 75.4 kg

DRUGS (8)
  1. CERTOLIZUMAB PEGOL [Suspect]
     Indication: RHEUMATOID ARTHRITIS
     Dosage: DOSE: 200MG, NO. OF DOSES RECEIVED: 2
     Route: 058
     Dates: start: 20120426, end: 20120426
  2. CERTOLIZUMAB PEGOL [Suspect]
     Indication: RHEUMATOID ARTHRITIS
     Dosage: DOSE: 400 MG, NO OF DOSES RECEIVED:3
     Route: 058
     Dates: start: 20120313, end: 20120410
  3. ACID FOLIC [Concomitant]
     Dosage: DOSE: 15 MG QS
     Dates: start: 200801
  4. METHOTREXATE [Concomitant]
     Indication: RHEUMATOID ARTHRITIS
     Dosage: 20 MG QS
     Dates: start: 200801
  5. PLAQUENIL [Concomitant]
     Indication: RHEUMATOID ARTHRITIS
     Dates: start: 200801
  6. SYNTHROID [Concomitant]
     Indication: HYPOTHYROIDISM
     Dates: start: 1977
  7. ALTACE [Concomitant]
     Indication: HYPERTENSION
     Dates: start: 1999
  8. VOLTAREN SR [Concomitant]
     Indication: RHEUMATOID ARTHRITIS
     Dosage: MORNING
     Dates: start: 2008

REACTIONS (2)
  - Rash [Recovered/Resolved]
  - Pruritus [Recovered/Resolved]
